FAERS Safety Report 7245352-2 (Version None)
Quarter: 2011Q1

REPORT INFORMATION
  Report Type: 
  Country: None (occurrence: None)
  Receive Date: 20110126
  Receipt Date: 20110119
  Transmission Date: 20110831
  Serious: Yes (Hospitalization, Other)
  Sender: FDA-Public Use
  Company Number: US-US-EMD SERONO, INC.-7015219

PATIENT
  Sex: Female
  Weight: 64 kg

DRUGS (8)
  1. REBIF [Suspect]
     Route: 058
     Dates: start: 20100101, end: 20100927
  2. LISINOPRIL [Concomitant]
     Indication: HYPERTENSION
     Dates: start: 20100201, end: 20100901
  3. CITALOPRAM [Concomitant]
     Indication: DEPRESSION
  4. REBIF [Suspect]
     Route: 058
     Dates: start: 20100818, end: 20100101
  5. LISINOPRIL [Concomitant]
     Indication: HEART RATE ABNORMAL
     Dates: start: 20100901
  6. REBIF [Suspect]
     Indication: RELAPSING-REMITTING MULTIPLE SCLEROSIS
     Route: 058
     Dates: start: 20100721, end: 20100101
  7. HYDROCHLOROTHIAZIDE [Concomitant]
     Indication: DIURETIC THERAPY
  8. CITALOPRAM [Concomitant]
     Indication: ANXIETY
     Dates: start: 20100701

REACTIONS (8)
  - PRESYNCOPE [None]
  - HYPOAESTHESIA [None]
  - PAIN [None]
  - BLOOD PRESSURE SYSTOLIC INCREASED [None]
  - INFLUENZA LIKE ILLNESS [None]
  - HYPERSENSITIVITY [None]
  - CORONARY ARTERY OCCLUSION [None]
  - CHRONIC OBSTRUCTIVE PULMONARY DISEASE [None]
